FAERS Safety Report 24076588 (Version 2)
Quarter: 2024Q3

REPORT INFORMATION
  Report Type: Spontaneous
  Country: SE (occurrence: SE)
  Receive Date: 20240711
  Receipt Date: 20240718
  Transmission Date: 20241017
  Serious: Yes (Death, Other)
  Sender: ALKEM
  Company Number: SE-ALKEM LABORATORIES LIMITED-SE-ALKEM-2024-14437

PATIENT
  Age: 73 Year
  Sex: Female

DRUGS (11)
  1. ERYTHROMYCIN [Interacting]
     Active Substance: ERYTHROMYCIN
     Indication: Pneumonia
     Dosage: UNK
     Route: 065
  2. ERYTHROMYCIN [Interacting]
     Active Substance: ERYTHROMYCIN
     Indication: Rales
  3. ERYTHROMYCIN [Interacting]
     Active Substance: ERYTHROMYCIN
     Indication: Lower respiratory tract infection
  4. VENLAFAXINE [Interacting]
     Active Substance: VENLAFAXINE HYDROCHLORIDE
     Indication: Depression
     Dosage: 225 MILLIGRAM
     Route: 065
  5. ESCITALOPRAM [Interacting]
     Active Substance: ESCITALOPRAM OXALATE
     Indication: Depression
     Dosage: 15 MILLIGRAM
     Route: 065
  6. ESCITALOPRAM [Interacting]
     Active Substance: ESCITALOPRAM OXALATE
     Dosage: UNK (DOSE INCRESED)
     Route: 065
  7. MORPHINE SULFATE [Suspect]
     Active Substance: MORPHINE SULFATE
     Indication: Mydriasis
     Dosage: 2.5 MILLIGRAM
     Route: 042
  8. ASPIRIN [Concomitant]
     Active Substance: ASPIRIN
     Indication: Coronary artery disease
     Dosage: UNK
     Route: 065
  9. PROPOFOL [Concomitant]
     Active Substance: PROPOFOL
     Indication: Hypertension
     Dosage: 40 MILLIGRAM, INFSUION
     Route: 042
  10. PROPOFOL [Concomitant]
     Active Substance: PROPOFOL
     Dosage: 20 MILLIGRAM
     Route: 042
  11. PROPOFOL [Concomitant]
     Active Substance: PROPOFOL
     Dosage: 1-4ML/H
     Route: 042

REACTIONS (13)
  - Ventricular fibrillation [Fatal]
  - Cardiac arrest [Fatal]
  - Myocardial infarction [Fatal]
  - Atrial fibrillation [Recovered/Resolved]
  - Depressed level of consciousness [Recovered/Resolved]
  - Electrocardiogram ST segment depression [Recovered/Resolved]
  - Serotonin syndrome [Recovered/Resolved]
  - Ventricular tachycardia [Unknown]
  - Clonus [Recovered/Resolved]
  - Hyperreflexia [Recovered/Resolved]
  - Drug interaction [Unknown]
  - Condition aggravated [Unknown]
  - Treatment failure [Unknown]
